FAERS Safety Report 20217730 (Version 1)
Quarter: 2021Q4

REPORT INFORMATION
  Report Type: Other
  Country: GR (occurrence: None)
  Receive Date: 20211222
  Receipt Date: 20211222
  Transmission Date: 20220303
  Serious: Yes (Death, Life-Threatening, Hospitalization)
  Sender: FDA-Public Use
  Company Number: GR-Merck Healthcare KGaA-9288034

PATIENT
  Age: 70 Year
  Sex: Female

DRUGS (3)
  1. METFORMIN HYDROCHLORIDE [Suspect]
     Active Substance: METFORMIN HYDROCHLORIDE
     Indication: Type 2 diabetes mellitus
  2. LEVOTHYROXINE [Suspect]
     Active Substance: LEVOTHYROXINE
     Indication: Product used for unknown indication
  3. HYDROCHLOROTHIAZIDE;OLMESARTAN [Concomitant]
     Indication: Product used for unknown indication

REACTIONS (5)
  - COVID-19 [Fatal]
  - Respiratory failure [Fatal]
  - Acute kidney injury [Not Recovered/Not Resolved]
  - Hyperkalaemia [Not Recovered/Not Resolved]
  - Lactic acidosis [Not Recovered/Not Resolved]
